FAERS Safety Report 11652350 (Version 2)
Quarter: 2016Q1

REPORT INFORMATION
  Report Type: Report from Study
  Country: JP (occurrence: JP)
  Receive Date: 20151022
  Receipt Date: 20160112
  Transmission Date: 20160525
  Serious: Yes (Other)
  Sender: FDA-Public Use
  Company Number: JP-JNJFOC-20141208684

PATIENT
  Age: 56 Year
  Sex: Male
  Weight: 70 kg

DRUGS (4)
  1. SOVRIAD [Suspect]
     Active Substance: SIMEPREVIR
     Indication: CHRONIC HEPATITIS C
     Route: 048
     Dates: start: 20140523, end: 20140814
  2. PEGASYS [Suspect]
     Active Substance: PEGINTERFERON ALFA-2A
     Indication: CHRONIC HEPATITIS C
     Route: 058
     Dates: start: 20140523, end: 20141031
  3. URSO [Concomitant]
     Active Substance: URSODIOL
     Indication: CHRONIC HEPATITIS C
     Route: 048
     Dates: start: 20140919
  4. RIBAVIRIN. [Suspect]
     Active Substance: RIBAVIRIN
     Indication: CHRONIC HEPATITIS C
     Route: 048
     Dates: start: 20140523, end: 20141107

REACTIONS (6)
  - Malaise [Recovering/Resolving]
  - Pollakiuria [Recovering/Resolving]
  - Eczema [Recovering/Resolving]
  - Pruritus generalised [Recovering/Resolving]
  - Gastroenteritis [Recovered/Resolved]
  - Platelet count decreased [Recovered/Resolved]

NARRATIVE: CASE EVENT DATE: 20140530
